FAERS Safety Report 12234693 (Version 1)
Quarter: 2016Q2

REPORT INFORMATION
  Report Type: Spontaneous
  Country: US (occurrence: None)
  Receive Date: 20160401
  Receipt Date: 20160401
  Transmission Date: 20160815
  Serious: Yes (Hospitalization)
  Sender: FDA-Public Use
  Company Number: None

PATIENT
  Age: 69 Year
  Sex: Female

DRUGS (12)
  1. CELEBREX [Concomitant]
     Active Substance: CELECOXIB
  2. OMEPRAZOLE. [Concomitant]
     Active Substance: OMEPRAZOLE
  3. TEMAZEPAM. [Concomitant]
     Active Substance: TEMAZEPAM
  4. IRBESARTAN. [Concomitant]
     Active Substance: IRBESARTAN
  5. LYRICA [Concomitant]
     Active Substance: PREGABALIN
  6. BUTALBITAL AND ACETAMINOPHEN [Concomitant]
     Active Substance: ACETAMINOPHEN\BUTALBITAL
  7. NASONEX [Concomitant]
     Active Substance: MOMETASONE FUROATE
  8. HYOSCYAMINE SULFATE. [Concomitant]
     Active Substance: HYOSCYAMINE SULFATE
  9. CYPROHEPTADINE. [Concomitant]
     Active Substance: CYPROHEPTADINE
  10. AMLODIPINE BESYLATE. [Concomitant]
     Active Substance: AMLODIPINE BESYLATE
  11. HARVONI [Suspect]
     Active Substance: LEDIPASVIR\SOFOSBUVIR
     Indication: HEPATITIS C
     Route: 048
  12. MELOXICAM. [Concomitant]
     Active Substance: MELOXICAM

REACTIONS (4)
  - Tachycardia [None]
  - Dyspnoea [None]
  - Cerebrovascular accident [None]
  - Oedema [None]

NARRATIVE: CASE EVENT DATE: 20160320
